FAERS Safety Report 6291345-1 (Version None)
Quarter: 2009Q3

REPORT INFORMATION
  Report Type: 
  Country: None (occurrence: None)
  Receive Date: 20090730
  Receipt Date: 20090720
  Transmission Date: 20100115
  Serious: Yes (Other)
  Sender: FDA-Public Use
  Company Number: US-JNJFOC-20090706624

PATIENT
  Sex: Male
  Weight: 55.79 kg

DRUGS (10)
  1. REMICADE [Suspect]
     Indication: COLITIS ULCERATIVE
     Route: 042
  2. SOLU-MEDROL [Concomitant]
  3. FLAGYL [Concomitant]
  4. TPN [Concomitant]
  5. IMURAN [Concomitant]
  6. CIPRO [Concomitant]
  7. FAMOTIDINE [Concomitant]
  8. INSULIN [Concomitant]
  9. LOPERAMIDE HYDROCHLORIDE [Concomitant]
  10. ROWASA [Concomitant]

REACTIONS (2)
  - BONE PAIN [None]
  - GASTROINTESTINAL HAEMORRHAGE [None]
